FAERS Safety Report 13262400 (Version 1)
Quarter: 2017Q1

REPORT INFORMATION
  Report Type: Spontaneous
  Country: GB (occurrence: GB)
  Receive Date: 20170223
  Receipt Date: 20170223
  Transmission Date: 20170428
  Serious: Yes (Other)
  Sender: FDA-Public Use
  Company Number: GB-HETERO LABS LTD-1063494

PATIENT
  Sex: Male

DRUGS (2)
  1. LEVETIRACETAM. [Suspect]
     Active Substance: LEVETIRACETAM
     Indication: EPILEPSY
     Route: 048
  2. BRIVIACT [Suspect]
     Active Substance: BRIVARACETAM
     Route: 048

REACTIONS (3)
  - Aggression [Unknown]
  - Mutism [Unknown]
  - Suicidal ideation [Unknown]
